FAERS Safety Report 12308944 (Version 1)
Quarter: 2016Q2

REPORT INFORMATION
  Report Type: Spontaneous
  Country: US (occurrence: None)
  Receive Date: 20160426
  Receipt Date: 20160426
  Transmission Date: 20160815
  Serious: Yes (Hospitalization, Other)
  Sender: FDA-Public Use
  Company Number: None

PATIENT
  Age: 64 Year
  Sex: Female

DRUGS (1)
  1. PHENYTOIN 100MG TAB [Suspect]
     Active Substance: PHENYTOIN
     Indication: EPILEPSY
     Dosage: 100 DF 3 TO 6 QHS ORALLY
     Route: 048
     Dates: start: 20140321

REACTIONS (2)
  - Drug ineffective [None]
  - Seizure [None]
